FAERS Safety Report 15585714 (Version 1)
Quarter: 2018Q4

REPORT INFORMATION
  Report Type: Spontaneous
  Country: FR (occurrence: FR)
  Receive Date: 20181105
  Receipt Date: 20181105
  Transmission Date: 20190205
  Serious: Yes (Other)
  Sender: FDA-Public Use
  Company Number: FR-PFIZER INC-2018443667

PATIENT
  Age: 55 Year
  Sex: Male
  Weight: 80 kg

DRUGS (15)
  1. CAMPTO [Suspect]
     Active Substance: IRINOTECAN
     Indication: COLORECTAL ADENOCARCINOMA
     Dosage: 360 MG, EVERY 15 DAYS
     Route: 041
     Dates: start: 20170523
  2. ERBITUX [Suspect]
     Active Substance: CETUXIMAB
     Indication: COLORECTAL ADENOCARCINOMA
     Dosage: 1000 MG, EVERY 15 DAYS
     Route: 041
     Dates: start: 20170523
  3. IMODIUM [Concomitant]
     Active Substance: LOPERAMIDE HYDROCHLORIDE
     Route: 048
     Dates: start: 20170524
  4. EMEND [Concomitant]
     Active Substance: APREPITANT
     Dosage: 125 MG ON DAY 1, 80 MG ON DAYS 2 AND 3
     Route: 048
     Dates: start: 20170524, end: 201709
  5. TRAMADOL HYDROCHLORIDE. [Concomitant]
     Active Substance: TRAMADOL HYDROCHLORIDE
     Route: 048
     Dates: start: 20170616
  6. PRIMPERAN [Concomitant]
     Active Substance: METOCLOPRAMIDE HYDROCHLORIDE
     Dosage: 30 MG, 1X/DAY
     Route: 048
     Dates: start: 20170524
  7. DOXYCYCLINE. [Concomitant]
     Active Substance: DOXYCYCLINE
     Dosage: 100 MG, 1X/DAY
     Route: 048
     Dates: start: 20170524
  8. TIORFAN [Concomitant]
     Active Substance: RACECADOTRIL
     Route: 048
     Dates: start: 20170622
  9. ZOPHREN [ONDANSETRON HYDROCHLORIDE] [Concomitant]
     Active Substance: ONDANSETRON
     Route: 048
     Dates: start: 20170524
  10. INNOHEP [Concomitant]
     Active Substance: TINZAPARIN SODIUM
     Dosage: 12000 IU, 1X/DAY
     Route: 058
     Dates: start: 20171002
  11. ELVORINE [Concomitant]
     Active Substance: LEUCOVORIN CALCIUM
     Indication: COLORECTAL ADENOCARCINOMA
     Dosage: 400 MG, EVERY 15 DAYS
     Route: 041
     Dates: start: 20180523
  12. POLARAMINE [Concomitant]
     Active Substance: DEXCHLORPHENIRAMINE MALEATE
     Dosage: 10 MG, EVERY 15 DAYS
     Route: 041
     Dates: start: 20180523
  13. FLUOROURACIL. [Suspect]
     Active Substance: FLUOROURACIL
     Indication: COLORECTAL ADENOCARCINOMA
     Dosage: 5600 MG, EVERY 15 DAYS
     Route: 041
     Dates: start: 20170523
  14. ZOPHREN [ONDANSETRON HYDROCHLORIDE] [Concomitant]
     Active Substance: ONDANSETRON
     Dosage: 16 MG, EVERY 15 DAYS
     Route: 041
     Dates: start: 20180523
  15. SOLU-MEDROL [Concomitant]
     Active Substance: METHYLPREDNISOLONE SODIUM SUCCINATE
     Dosage: 120 MG, EVERY 15 DAYS
     Route: 040
     Dates: start: 20180523

REACTIONS (2)
  - Hypomagnesaemia [Not Recovered/Not Resolved]
  - Generalised tonic-clonic seizure [Recovered/Resolved]

NARRATIVE: CASE EVENT DATE: 20180829
